FAERS Safety Report 8818501 (Version 1)
Quarter: 2012Q4

REPORT INFORMATION
  Report Type: 
  Country: BR (occurrence: BR)
  Receive Date: 20121001
  Receipt Date: 20121001
  Transmission Date: 20130627
  Serious: Yes (Hospitalization)
  Sender: FDA-Public Use
  Company Number: BR-ROCHE-1133875

PATIENT
  Sex: Female
  Weight: 36.5 kg

DRUGS (6)
  1. ACTEMRA [Suspect]
     Indication: PRODUCT USED FOR UNKNOWN INDICATION
     Route: 065
  2. ENBREL [Suspect]
     Indication: RHEUMATOID ARTHRITIS
     Route: 058
     Dates: start: 200712, end: 201108
  3. METHOTREXATE [Concomitant]
     Route: 065
  4. RISPERIDONE [Concomitant]
  5. CLONAZEPAM [Concomitant]
  6. CLOMETACIN [Concomitant]

REACTIONS (4)
  - Nervous system disorder [Unknown]
  - Weight decreased [Unknown]
  - Psychotic disorder [Unknown]
  - No therapeutic response [Unknown]
